FAERS Safety Report 9414385 (Version 1)
Quarter: 2013Q3

REPORT INFORMATION
  Report Type: Spontaneous
  Country: CA (occurrence: CA)
  Receive Date: 20130723
  Receipt Date: 20130723
  Transmission Date: 20140515
  Serious: Yes (Other)
  Sender: FDA-Public Use
  Company Number: CA-GLAXOSMITHKLINE-A1032803A

PATIENT
  Age: 46 Year
  Sex: Male

DRUGS (1)
  1. VOTRIENT [Suspect]
     Indication: SARCOMA
     Dosage: 800MG UNKNOWN
     Route: 065
     Dates: end: 201304

REACTIONS (2)
  - Adverse drug reaction [Unknown]
  - Malignant neoplasm progression [Unknown]
